FAERS Safety Report 4670895-5 (Version None)
Quarter: 2005Q2

REPORT INFORMATION
  Report Type: 
  Country: None (occurrence: None)
  Receive Date: 20050523
  Receipt Date: 20050510
  Transmission Date: 20051028
  Serious: Yes (Hospitalization)
  Sender: FDA-Public Use
  Company Number: 2005066539

PATIENT
  Age: 29 Year
  Sex: Female

DRUGS (11)
  1. ZITHROMAX [Suspect]
     Indication: BRONCHITIS
     Dosage: 500 MG (500 MG, QD), ORAL
     Route: 048
     Dates: start: 20050411, end: 20050413
  2. ZITHROMAX [Suspect]
     Indication: PHARYNGITIS
     Dosage: 500 MG (500 MG, QD), ORAL
     Route: 048
     Dates: start: 20050411, end: 20050413
  3. COLDRIN                (CLOFEDANOL HYDROCHLORIDE) [Suspect]
     Indication: BRONCHITIS
     Dosage: 37.5 MG (12.5 MG, TID), ORAL
     Route: 048
     Dates: start: 20050411, end: 20050418
  4. COLDRIN                (CLOFEDANOL HYDROCHLORIDE) [Suspect]
     Indication: PHARYNGITIS
     Dosage: 37.5 MG (12.5 MG, TID), ORAL
     Route: 048
     Dates: start: 20050411, end: 20050418
  5. MEDICON                   (DEXTROMETHOPRPHAN HYDROBROMIDE0 [Concomitant]
  6. SAIBOUKU-TO             (HERBAL EXTRACTS NOS) [Concomitant]
  7. KOKUNALIN              (TULOBUTEROL HYDROCHLORIDE) [Concomitant]
  8. TAKEPRON             (LANSOPRAZOLE) [Concomitant]
  9. GASMOTIN             (MOSAPRIDE CITRATE) [Concomitant]
  10. SELBEX            (TEPRENONE) [Concomitant]
  11. ZYRTEC [Concomitant]

REACTIONS (3)
  - DIPLOPIA [None]
  - EYELID PTOSIS [None]
  - IIIRD NERVE PARALYSIS [None]
